FAERS Safety Report 7939585-7 (Version None)
Quarter: 2011Q4

REPORT INFORMATION
  Report Type: 
  Country: None (occurrence: None)
  Receive Date: 20111125
  Receipt Date: 20110907
  Transmission Date: 20120403
  Serious: No
  Sender: FDA-Public Use
  Company Number: US-BAYER-2011-089330

PATIENT
  Sex: Female

DRUGS (4)
  1. EXCEDRIN [ACETYLSALICYLIC ACID,CAFFEINE,SALICYLAMIDE] [Concomitant]
     Dosage: 8 DF, UNK
  2. NAPROXEN [Suspect]
     Indication: DYSMENORRHOEA
     Dosage: 2 DF, UNK
  3. ALEVE (CAPLET) [Suspect]
     Indication: DYSMENORRHOEA
     Dosage: 4 DF, UNK
  4. IBUPROFEN (ADVIL) [Concomitant]
     Dosage: 3 DF, UNK

REACTIONS (1)
  - DYSMENORRHOEA [None]
